FAERS Safety Report 15242922 (Version 1)
Quarter: 2018Q3

REPORT INFORMATION
  Report Type: Spontaneous
  Country: US (occurrence: US)
  Receive Date: 20180712
  Receipt Date: 20180712
  Transmission Date: 20181010
  Serious: Yes (Hospitalization, Disabling)
  Sender: FDA-Public Use
  Company Number: None

PATIENT
  Age: 81 Year
  Sex: Female
  Weight: 59.87 kg

DRUGS (14)
  1. IMITREX [Suspect]
     Active Substance: SUMATRIPTAN SUCCINATE
     Indication: MIGRAINE
     Route: 048
  2. VITAMIN B COMPLEX [Concomitant]
     Active Substance: CYANOCOBALAMIN\DEXPANTHENOL\NIACINAMIDE\PYRIDOXINE HYDROCHLORIDE\RIBOFLAVIN 5^-PHOSPHATE SODIUM\THIAMINE HYDROCHLORIDE\VITAMIN B COMPLEX
  3. AGGRENOX [Suspect]
     Active Substance: ASPIRIN\DIPYRIDAMOLE
     Indication: CEREBROVASCULAR ACCIDENT PROPHYLAXIS
  4. DOK [Concomitant]
     Active Substance: DOCUSATE SODIUM
  5. TRAMADOL. [Suspect]
     Active Substance: TRAMADOL
     Indication: BACK PAIN
  6. LYRICA [Suspect]
     Active Substance: PREGABALIN
  7. LORSARTAN [Suspect]
     Active Substance: LOSARTAN
     Indication: BLOOD PRESSURE MEASUREMENT
  8. IMITREX [Suspect]
     Active Substance: SUMATRIPTAN SUCCINATE
  9. PATANOL [Suspect]
     Active Substance: OLOPATADINE HYDROCHLORIDE
  10. ESCITALOPRAM [Suspect]
     Active Substance: ESCITALOPRAM OXALATE
  11. TRAZODONE [Suspect]
     Active Substance: TRAZODONE HYDROCHLORIDE
  12. ATENOLOL. [Suspect]
     Active Substance: ATENOLOL
  13. LEVOTHYRONINE [Suspect]
     Active Substance: LIOTHYRONINE
  14. FIBER ION [Concomitant]

REACTIONS (2)
  - Pneumonia [None]
  - Asthenia [None]

NARRATIVE: CASE EVENT DATE: 20161122
